FAERS Safety Report 13662538 (Version 2)
Quarter: 2017Q3

REPORT INFORMATION
  Report Type: Spontaneous
  Country: GB (occurrence: GB)
  Receive Date: 20170617
  Receipt Date: 20170704
  Transmission Date: 20171127
  Serious: Yes (Life-Threatening, Hospitalization, Other)
  Sender: FDA-Public Use
  Company Number: GB-ELI_LILLY_AND_COMPANY-GB201706005109

PATIENT
  Age: 49 Year
  Sex: Male

DRUGS (6)
  1. LORAZEPAM. [Concomitant]
     Active Substance: LORAZEPAM
     Dosage: 20 MG, DAILY
     Route: 065
     Dates: start: 201408
  2. OLANZAPINE. [Suspect]
     Active Substance: OLANZAPINE
     Indication: CATATONIA
  3. LORAZEPAM. [Concomitant]
     Active Substance: LORAZEPAM
     Indication: CATATONIA
     Dosage: 6 MG, DAILY
     Route: 065
     Dates: start: 201407
  4. LORAZEPAM. [Concomitant]
     Active Substance: LORAZEPAM
     Dosage: 12 MG, TID
     Dates: start: 20140727
  5. OLANZAPINE. [Suspect]
     Active Substance: OLANZAPINE
     Indication: SCHIZOPHRENIA
     Dosage: 20 MG, UNKNOWN
     Route: 065
     Dates: start: 20140717
  6. LORAZEPAM. [Concomitant]
     Active Substance: LORAZEPAM
     Indication: SCHIZOPHRENIA
     Dosage: 1 MG, DAILY
     Route: 065
     Dates: start: 20140715

REACTIONS (6)
  - Rhabdomyolysis [Recovered/Resolved]
  - Urinary retention [Recovered/Resolved]
  - Neuroleptic malignant syndrome [Recovered/Resolved]
  - Acute kidney injury [Recovered/Resolved]
  - Pulmonary embolism [Recovered/Resolved]
  - Ileus [Recovered/Resolved]

NARRATIVE: CASE EVENT DATE: 2014
